FAERS Safety Report 23549827 (Version 1)
Quarter: 2024Q1

REPORT INFORMATION
  Report Type: Report from Study
  Country: CA (occurrence: CA)
  Receive Date: 20240221
  Receipt Date: 20240221
  Transmission Date: 20240409
  Serious: Yes (Other)
  Sender: FDA-Public Use
  Company Number: CA-BAYER-2024A016206

PATIENT
  Sex: Male

DRUGS (2)
  1. EYLEA [Suspect]
     Active Substance: AFLIBERCEPT
     Indication: Diabetic retinal oedema
     Dosage: 2 MG, RIGHT EYE, SOLUTION FOR INJECTION
     Dates: start: 20240116
  2. EYLEA [Suspect]
     Active Substance: AFLIBERCEPT
     Indication: Diabetic retinopathy
     Dosage: 2 MG , LEFT EYE, SOLUTION FOR INJECTION
     Dates: start: 202401

REACTIONS (8)
  - Blindness [Unknown]
  - Eye infection intraocular [Not Recovered/Not Resolved]
  - Endophthalmitis [Unknown]
  - Visual acuity reduced [Unknown]
  - Visual impairment [Unknown]
  - Ocular hyperaemia [Unknown]
  - Eye pain [Unknown]
  - Wrong technique in product usage process [Unknown]

NARRATIVE: CASE EVENT DATE: 20240116
